FAERS Safety Report 9261439 (Version 1)
Quarter: 2013Q2

REPORT INFORMATION
  Report Type: Spontaneous
  Country: NO (occurrence: NO)
  Receive Date: 20130429
  Receipt Date: 20130429
  Transmission Date: 20140414
  Serious: Yes (Congenital Anomaly)
  Sender: FDA-Public Use
  Company Number: NO-ACTAVIS-2013-07378

PATIENT
  Sex: Male

DRUGS (2)
  1. TRAMADOL HYDROCHLORIDE (UNKNOWN) [Suspect]
     Indication: BACK PAIN
     Dosage: 50 MG, QID
     Route: 064
  2. PARACETAMOL [Concomitant]
     Indication: BACK PAIN
     Dosage: 1 G, TID
     Route: 065

REACTIONS (4)
  - Anal atresia [Recovered/Resolved]
  - Congenital anomaly [Recovered/Resolved]
  - Spine malformation [Recovered/Resolved]
  - Foetal exposure during pregnancy [Unknown]
